FAERS Safety Report 20892963 (Version 3)
Quarter: 2022Q2

REPORT INFORMATION
  Report Type: Report from Study
  Country: BR (occurrence: BR)
  Receive Date: 20220531
  Receipt Date: 20220620
  Transmission Date: 20220721
  Serious: Yes (Death, Hospitalization)
  Sender: FDA-Public Use
  Company Number: BR-NOVARTISPH-NVSC2022BR123832

PATIENT
  Sex: Female

DRUGS (1)
  1. FEMARA [Suspect]
     Active Substance: LETROZOLE
     Indication: Product used for unknown indication
     Dosage: UNK
     Route: 065
     Dates: start: 202105

REACTIONS (6)
  - Death [Fatal]
  - Platelet count decreased [Not Recovered/Not Resolved]
  - Toxicity to various agents [Unknown]
  - Abdominal discomfort [Unknown]
  - Decreased appetite [Unknown]
  - Drug ineffective [Recovered/Resolved]
